FAERS Safety Report 8285785-9 (Version None)
Quarter: 2012Q2

REPORT INFORMATION
  Report Type: 
  Country: None (occurrence: None)
  Receive Date: 20120413
  Receipt Date: 20120404
  Transmission Date: 20120825
  Serious: Yes (Hospitalization, Other)
  Sender: FDA-Public Use
  Company Number: US-ELI_LILLY_AND_COMPANY-US201201005898

PATIENT
  Sex: Female

DRUGS (10)
  1. FORTEO [Suspect]
     Indication: OSTEOPOROSIS
     Dosage: 20 UG, QD
     Dates: start: 20120101
  2. CALCIUM CARBONATE [Concomitant]
     Dosage: UNK, BID
  3. COUMADIN [Concomitant]
  4. METOPROLOL TARTRATE [Concomitant]
  5. ADVAIR DISKUS 100/50 [Concomitant]
  6. FOLIC ACID [Concomitant]
  7. FUROSEMIDE [Concomitant]
  8. FORTEO [Suspect]
     Dosage: 20 UG, QD
     Dates: end: 20120322
  9. WARFARIN SODIUM [Concomitant]
  10. MULTIVITAMIN [Concomitant]

REACTIONS (5)
  - ARTHRALGIA [None]
  - DYSPNOEA [None]
  - MUSCULOSKELETAL STIFFNESS [None]
  - ANTICOAGULATION DRUG LEVEL BELOW THERAPEUTIC [None]
  - CARDIAC FAILURE [None]
